FAERS Safety Report 25637760 (Version 1)
Quarter: 2025Q3

REPORT INFORMATION
  Report Type: Spontaneous
  Country: JP (occurrence: JP)
  Receive Date: 20250804
  Receipt Date: 20250804
  Transmission Date: 20251020
  Serious: Yes (Other)
  Sender: ASTELLAS
  Company Number: JP-ASTELLAS-2025-AER-041985

PATIENT
  Age: 65 Year
  Sex: Male

DRUGS (3)
  1. XTANDI [Suspect]
     Active Substance: ENZALUTAMIDE
     Indication: Hormone-dependent prostate cancer
     Route: 048
     Dates: start: 202401, end: 202506
  2. CILOSTAZOL [Concomitant]
     Active Substance: CILOSTAZOL
     Indication: Cerebral infarction
     Route: 065
  3. WARFARIN [Concomitant]
     Active Substance: WARFARIN
     Indication: Cerebral infarction
     Route: 065

REACTIONS (1)
  - Hydronephrosis [Recovered/Resolved]

NARRATIVE: CASE EVENT DATE: 20250601
